FAERS Safety Report 4958081-2 (Version None)
Quarter: 2006Q1

REPORT INFORMATION
  Report Type: 
  Country: None (occurrence: None)
  Receive Date: 20060330
  Receipt Date: 20060322
  Transmission Date: 20060701
  Serious: Yes (Hospitalization)
  Sender: FDA-Public Use
  Company Number: CA-AMGEN-US171807

PATIENT
  Sex: Male
  Weight: 7.9 kg

DRUGS (5)
  1. ARANESP [Suspect]
     Indication: DIALYSIS
     Route: 058
     Dates: start: 20050706
  2. CALCITRIOL [Concomitant]
     Dates: start: 20050708
  3. FERROUS SULFATE TAB [Concomitant]
     Dates: start: 20050323
  4. SODIUM CHLORIDE [Concomitant]
     Dates: start: 20050303
  5. RANITIDINE [Concomitant]
     Dates: start: 20050915

REACTIONS (7)
  - ANAEMIA [None]
  - BLOOD PRESSURE INCREASED [None]
  - COUGH [None]
  - INDWELLING CATHETER MANAGEMENT [None]
  - PHARYNGITIS STREPTOCOCCAL [None]
  - THERAPEUTIC RESPONSE DECREASED [None]
  - UPPER RESPIRATORY TRACT INFECTION [None]
